FAERS Safety Report 4307485-X (Version None)
Quarter: 2004Q1

REPORT INFORMATION
  Report Type: 
  Country: None (occurrence: None)
  Receive Date: 20040226
  Receipt Date: 20040219
  Transmission Date: 20041129
  Serious: Yes (Other)
  Sender: FDA-Public Use
  Company Number: GB-JNJFOC-20040204335

PATIENT
  Age: 57 Year
  Sex: Female
  Weight: 109 kg

DRUGS (1)
  1. REMICADE [Suspect]
     Indication: VASCULITIS
     Dosage: 5 MG/KG, INTRAVENOUS
     Route: 042
     Dates: start: 20040108, end: 20040108

REACTIONS (11)
  - ARTHRALGIA [None]
  - COORDINATION ABNORMAL [None]
  - DIZZINESS [None]
  - DRUG HYPERSENSITIVITY [None]
  - FATIGUE [None]
  - HEADACHE [None]
  - INFUSION RELATED REACTION [None]
  - PAIN [None]
  - SWOLLEN TONGUE [None]
  - VOMITING [None]
  - WHEEZING [None]
